FAERS Safety Report 4636445-4 (Version None)
Quarter: 2005Q2

REPORT INFORMATION
  Report Type: 
  Country: None (occurrence: None)
  Receive Date: 20050413
  Receipt Date: 20050413
  Transmission Date: 20051028
  Serious: Yes (Death)
  Sender: FDA-Public Use
  Company Number: None

PATIENT
  Sex: Male
  Weight: 68.3 kg

DRUGS (4)
  1. FLUOROURACIL [Suspect]
     Dosage: CYCLE 3 STARTED , 05-APR-2005
     Dates: start: 20050104
  2. CISPLATIN [Suspect]
  3. EPIRUBICIN [Suspect]
  4. RADIATION [Suspect]

REACTIONS (4)
  - DYSPHAGIA [None]
  - OBSTRUCTION [None]
  - OESOPHAGEAL DISORDER [None]
  - RADIATION INJURY [None]
